FAERS Safety Report 5506770-3 (Version None)
Quarter: 2007Q4

REPORT INFORMATION
  Report Type: 
  Country: None (occurrence: None)
  Receive Date: 20071101
  Receipt Date: 20070806
  Transmission Date: 20080405
  Serious: Yes (Other)
  Sender: FDA-Public Use
  Company Number: A0645525A

PATIENT
  Sex: Female

DRUGS (1)
  1. HYDROGEN PEROXIDE SOLUTION (FORMULATION UNKNOWN) (HYDROGEN PEROXIDE SO [Suspect]
     Dosage: DENTAL
     Route: 004

REACTIONS (4)
  - CHOKING [None]
  - FOAMING AT MOUTH [None]
  - PHARMACEUTICAL PRODUCT COMPLAINT [None]
  - RETCHING [None]
